FAERS Safety Report 7646745 (Version 4)
Quarter: 2016Q1

REPORT INFORMATION
  Report Type: Report from Study
  Country: JP (occurrence: JP)
  Receive Date: 20101029
  Receipt Date: 20160309
  Transmission Date: 20160526
  Serious: Yes (Death, Life-Threatening, Hospitalization, Other)
  Sender: FDA-Public Use
  Company Number: PHHY2009JP15891

PATIENT
  Age: 74 Year
  Sex: Female
  Weight: 40 kg

DRUGS (10)
  1. NEORAL [Suspect]
     Active Substance: CYCLOSPORINE
     Indication: APLASTIC ANAEMIA
     Dosage: 100 MG, QD
     Route: 048
     Dates: start: 20071122, end: 20090930
  2. CLARITHROMYCIN. [Concomitant]
     Active Substance: CLARITHROMYCIN
     Indication: PRODUCT USED FOR UNKNOWN INDICATION
     Dosage: 400 MG
     Route: 048
     Dates: start: 20080811, end: 20080921
  3. NEORAL [Suspect]
     Active Substance: CYCLOSPORINE
     Dosage: 75 MG, QD
     Route: 048
     Dates: start: 20091001, end: 20091014
  4. DESFERAL [Concomitant]
     Active Substance: DEFEROXAMINE MESYLATE
     Indication: PRODUCT USED FOR UNKNOWN INDICATION
     Dosage: 500 MG, UNK
     Route: 030
  5. NEUTROGIN [Concomitant]
     Active Substance: LENOGRASTIM
     Indication: APLASTIC ANAEMIA
     Dosage: 2.50 UG, UNK
     Route: 065
     Dates: start: 20060810, end: 20091122
  6. GLAKAY [Concomitant]
     Active Substance: MENATETRENONE
     Indication: APLASTIC ANAEMIA
     Dosage: 45 MG, UNK
     Route: 048
     Dates: start: 20060610, end: 20091028
  7. ICL670A [Suspect]
     Active Substance: DEFERASIROX
     Indication: APLASTIC ANAEMIA
     Dosage: 500 MG, QD
     Route: 048
     Dates: start: 20080909, end: 20090924
  8. ISONIAZID. [Concomitant]
     Active Substance: ISONIAZID
     Indication: PRODUCT USED FOR UNKNOWN INDICATION
     Dosage: 100 MG, UNK
     Route: 048
     Dates: start: 20091113, end: 20091116
  9. ICL670A [Suspect]
     Active Substance: DEFERASIROX
     Indication: IRON OVERLOAD
     Dosage: 500 MG, QD
     Route: 048
     Dates: start: 20090925, end: 20091022
  10. DIFLUCAN [Concomitant]
     Active Substance: FLUCONAZOLE
     Indication: PRODUCT USED FOR UNKNOWN INDICATION
     Dosage: 200 MG, UNK
     Route: 048
     Dates: start: 20080811, end: 20081015

REACTIONS (15)
  - Cough [Fatal]
  - Bronchitis [Recovered/Resolved]
  - Renal failure [Fatal]
  - Blood urea increased [Fatal]
  - Pneumonia [Recovered/Resolved]
  - Bronchitis [Fatal]
  - Multiple organ dysfunction syndrome [Fatal]
  - Infection [Not Recovered/Not Resolved]
  - Pneumonia [Fatal]
  - Bacterial infection [Fatal]
  - Bronchitis [Recovering/Resolving]
  - Blood creatinine increased [Fatal]
  - Pyrexia [Fatal]
  - Pneumonia [Recovered/Resolved]
  - Dehydration [Not Recovered/Not Resolved]

NARRATIVE: CASE EVENT DATE: 20081010
